FAERS Safety Report 15391827 (Version 1)
Quarter: 2018Q3

REPORT INFORMATION
  Report Type: Spontaneous
  Country: RU (occurrence: RU)
  Receive Date: 20180917
  Receipt Date: 20180917
  Transmission Date: 20181010
  Serious: Yes (Hospitalization)
  Sender: FDA-Public Use
  Company Number: RU-PFIZER INC-2018372347

PATIENT
  Age: 76 Year
  Sex: Female

DRUGS (2)
  1. DIGOXIN. [Suspect]
     Active Substance: DIGOXIN
     Indication: COMPLETED SUICIDE
     Dosage: 2.5 MG / 4000 MG
     Route: 048
     Dates: start: 20180810, end: 20180810
  2. CORDARONE [Suspect]
     Active Substance: AMIODARONE HYDROCHLORIDE
     Indication: COMPLETED SUICIDE
     Dosage: 2.5 MG / 4000 MG
     Route: 048
     Dates: start: 20180810, end: 20180810

REACTIONS (1)
  - Toxic encephalopathy [Recovering/Resolving]

NARRATIVE: CASE EVENT DATE: 20180812
